FAERS Safety Report 12804402 (Version 2)
Quarter: 2016Q4

REPORT INFORMATION
  Report Type: Spontaneous
  Country: BR (occurrence: BR)
  Receive Date: 20161003
  Receipt Date: 20161104
  Transmission Date: 20170207
  Serious: Yes (Life-Threatening, Other)
  Sender: FDA-Public Use
  Company Number: PHHY2016BR133507

PATIENT
  Sex: Female
  Weight: 78 kg

DRUGS (1)
  1. PANTOPRAZOLE [Suspect]
     Active Substance: PANTOPRAZOLE SODIUM
     Indication: GASTRIC DISORDER
     Dosage: 1 DF, QD
     Route: 048
     Dates: start: 2007

REACTIONS (4)
  - Pain [Not Recovered/Not Resolved]
  - Hernia [Recovering/Resolving]
  - Depression [Unknown]
  - Hepatic steatosis [Recovering/Resolving]
